FAERS Safety Report 9798767 (Version 1)
Quarter: 2013Q4

REPORT INFORMATION
  Report Type: Spontaneous
  Country: IE (occurrence: None)
  Receive Date: 20131230
  Receipt Date: 20131230
  Transmission Date: 20140711
  Serious: Yes (Hospitalization)
  Sender: FDA-Public Use
  Company Number: IPC201312-000535

PATIENT
  Age: 76 Year
  Sex: Male

DRUGS (5)
  1. FUROSEMIDE (FUROSEMIDE) [Suspect]
  2. METOPROLOL TARTRATE (METOPROLOL TARTRATE) (METOPROLOL TARTRATE) [Suspect]
  3. WARFARIN (WARFARIN) (WARFARIN) [Suspect]
     Indication: ATRIAL FIBRILLATION
  4. ROSUVASTATIN [Suspect]
     Indication: ATRIAL FIBRILLATION
  5. AMIODARONE [Suspect]

REACTIONS (3)
  - Spinal epidural haematoma [None]
  - International normalised ratio increased [None]
  - Intervertebral disc protrusion [None]
